FAERS Safety Report 10736336 (Version 1)
Quarter: 2015Q1

REPORT INFORMATION
  Report Type: Spontaneous
  Country: US (occurrence: None)
  Receive Date: 20150121
  Receipt Date: 20150121
  Transmission Date: 20150721
  Serious: Yes (Other)
  Sender: FDA-Public Use
  Company Number: 2015SCAL000010

PATIENT

DRUGS (2)
  1. FOLATE (FOLIC ACID) [Concomitant]
  2. LAMOTRIGINE. [Suspect]
     Active Substance: LAMOTRIGINE
     Indication: PRODUCT USED FOR UNKNOWN INDICATION
     Route: 064

REACTIONS (5)
  - Gross motor delay [None]
  - Foetal exposure during pregnancy [None]
  - Developmental delay [None]
  - Oculoauriculovertebral dysplasia [None]
  - Maternal drugs affecting foetus [None]
